FAERS Safety Report 11832653 (Version 1)
Quarter: 2015Q4

REPORT INFORMATION
  Report Type: Report from Study
  Country: RU (occurrence: RU)
  Receive Date: 20151214
  Receipt Date: 20151214
  Transmission Date: 20160305
  Serious: Yes (Hospitalization, Disabling)
  Sender: FDA-Public Use
  Company Number: RU-TEVA-614940ISR

PATIENT
  Age: 73 Year
  Sex: Male

DRUGS (7)
  1. ABT-888 [Suspect]
     Active Substance: VELIPARIB
     Indication: COLORECTAL CANCER METASTATIC
     Dosage: DB STUDY
     Route: 048
     Dates: start: 20150831, end: 20151018
  2. FOLINIC ACID [Concomitant]
     Active Substance: LEUCOVORIN
     Dosage: 2 DOSAGE FORMS DAILY;
     Route: 048
     Dates: start: 20151008
  3. 5-FLUOROURACIL [Suspect]
     Active Substance: FLUOROURACIL
     Indication: COLORECTAL CANCER METASTATIC
     Dosage: OPEN LABEL
     Route: 040
     Dates: start: 20150902, end: 20151014
  4. 5-FLUOROURACIL [Suspect]
     Active Substance: FLUOROURACIL
     Route: 042
     Dates: start: 20150902, end: 20151016
  5. IRINOTECAN [Suspect]
     Active Substance: IRINOTECAN
     Indication: COLORECTAL CANCER METASTATIC
     Dosage: OPEN LABEL
     Route: 042
     Dates: start: 20150902, end: 20151014
  6. FOLINIC ACID [Concomitant]
     Active Substance: LEUCOVORIN
     Indication: COLORECTAL CANCER METASTATIC
     Route: 042
     Dates: start: 20150902, end: 20151014
  7. FERROUS SULFATE + ASCORBIC ACID [Concomitant]
     Indication: ANAEMIA

REACTIONS (2)
  - Arrhythmia [Unknown]
  - Pneumonia [Unknown]

NARRATIVE: CASE EVENT DATE: 20151024
